FAERS Safety Report 9096097 (Version 1)
Quarter: 2013Q1

REPORT INFORMATION
  Report Type: Spontaneous
  Country: BR (occurrence: BR)
  Receive Date: 20130207
  Receipt Date: 20130207
  Transmission Date: 20140127
  Serious: Yes (Other)
  Sender: FDA-Public Use
  Company Number: BR-PFIZER INC-2013010317

PATIENT
  Sex: Male

DRUGS (2)
  1. CARDURAN XL [Suspect]
     Indication: URINARY RETENTION
     Dosage: 1 TABLET OF 4 MG, DAILY
     Route: 048
     Dates: start: 2012
  2. CARDURAN XL [Suspect]
     Indication: URETHRAL INJURY

REACTIONS (2)
  - Urethral disorder [Unknown]
  - Drug ineffective [Unknown]
